FAERS Safety Report 23303418 (Version 3)
Quarter: 2023Q4

REPORT INFORMATION
  Report Type: Spontaneous
  Country: CN (occurrence: CN)
  Receive Date: 20231215
  Receipt Date: 20231222
  Transmission Date: 20240109
  Serious: Yes (Other)
  Sender: FDA-Public Use
  Company Number: CN-002147023-NVSC2023CN261454

PATIENT
  Age: 68 Year
  Sex: Male
  Weight: 45 kg

DRUGS (2)
  1. CARBAMAZEPINE [Suspect]
     Active Substance: CARBAMAZEPINE
     Indication: Herpes zoster
     Dosage: 200 MG, TID
     Route: 048
     Dates: start: 20231126, end: 20231205
  2. CARBAMAZEPINE [Suspect]
     Active Substance: CARBAMAZEPINE
     Indication: Neuralgia

REACTIONS (13)
  - White blood cell count decreased [Unknown]
  - Hyperpyrexia [Unknown]
  - Neutrophil count decreased [Unknown]
  - Haemoglobin decreased [Unknown]
  - C-reactive protein increased [Unknown]
  - Mean cell haemoglobin concentration increased [Unknown]
  - Platelet count decreased [Unknown]
  - Mean cell haemoglobin increased [Unknown]
  - Eosinophil percentage decreased [Unknown]
  - Lymphocyte count decreased [Unknown]
  - Infection [Unknown]
  - Red blood cell count decreased [Unknown]
  - Product use in unapproved indication [Unknown]

NARRATIVE: CASE EVENT DATE: 20231204
